FAERS Safety Report 13930299 (Version 5)
Quarter: 2018Q4

REPORT INFORMATION
  Report Type: Report from Study
  Country: GT (occurrence: GT)
  Receive Date: 20170901
  Receipt Date: 20181107
  Transmission Date: 20190204
  Serious: Yes (Hospitalization, Other)
  Sender: FDA-Public Use
  Company Number: PHHY2017GT127172

PATIENT
  Sex: Female
  Weight: 68.27 kg

DRUGS (7)
  1. LIPITOR [Concomitant]
     Active Substance: ATORVASTATIN CALCIUM
     Indication: BLOOD TRIGLYCERIDES ABNORMAL
     Route: 065
  2. SEEBRI BREEZHALER [Suspect]
     Active Substance: GLYCOPYRROLATE
     Indication: PRODUCT USED FOR UNKNOWN INDICATION
     Dosage: BID
     Route: 055
  3. ESOMEPRAZOLE. [Concomitant]
     Active Substance: ESOMEPRAZOLE MAGNESIUM
     Indication: PRODUCT USED FOR UNKNOWN INDICATION
     Route: 065
  4. RASILEZ [Suspect]
     Active Substance: ALISKIREN
     Indication: CARDIAC DISORDER
     Dosage: 300 MG, QD
     Route: 065
  5. CALCIUM [Concomitant]
     Active Substance: CALCIUM
     Indication: PRODUCT USED FOR UNKNOWN INDICATION
     Route: 065
  6. DIOVAN [Suspect]
     Active Substance: VALSARTAN
     Indication: CARDIAC DISORDER
     Dosage: 320 MG, QD
     Route: 048
  7. CO-DIOVAN [Suspect]
     Active Substance: HYDROCHLOROTHIAZIDE\VALSARTAN
     Indication: CARDIAC DISORDER
     Dosage: 1 DF (HYDROCHLOROTHIAZIDE 25 MG, VALSARTAN 320 MG), QD
     Route: 048
     Dates: end: 201704

REACTIONS (18)
  - Blood pressure increased [Unknown]
  - Gastrointestinal disorder [Unknown]
  - Pleural effusion [Unknown]
  - Malaise [Unknown]
  - Gait inability [Unknown]
  - Chest pain [Unknown]
  - Osteoporosis [Unknown]
  - Calcium metabolism disorder [Unknown]
  - Condition aggravated [Unknown]
  - Gastric ulcer [Unknown]
  - Limb deformity [Unknown]
  - Intentional overdose [Unknown]
  - Pulmonary fibrosis [Unknown]
  - Urinary tract infection [Unknown]
  - Muscular weakness [Unknown]
  - Peripheral swelling [Unknown]
  - Fluid retention [Unknown]
  - Heart rate decreased [Unknown]
